FAERS Safety Report 7053091-6 (Version None)
Quarter: 2010Q4

REPORT INFORMATION
  Report Type: 
  Country: None (occurrence: None)
  Receive Date: 20101020
  Receipt Date: 20100824
  Transmission Date: 20110411
  Serious: Yes (Hospitalization)
  Sender: FDA-Public Use
  Company Number: US-BAYER-201011756NA

PATIENT
  Age: 30 Year
  Sex: Female
  Weight: 64 kg

DRUGS (11)
  1. YASMIN [Suspect]
     Indication: CONTRACEPTION
     Dosage: PRESCRIPTIONS ON: 25AUG14OCT 12NOV 04DEC (2007), 01FEB08 26FEB08 27MAR08 25APR08, 24MAY08 22JUN08
     Route: 048
     Dates: start: 20061118, end: 20080622
  2. YASMIN [Suspect]
     Route: 048
     Dates: start: 20081012
  3. OCELLA [Suspect]
     Indication: CONTRACEPTION
     Dosage: PRESCRIPTIONS: 15AUG07 13SEP,05NOV-08,02FEB,26FEB,28MAR,25APR,19JUL,16AUG,11SEP,10OCT, 07NOV-2009.
     Route: 048
     Dates: start: 20080815, end: 20091107
  4. AMITRIPTYLINE HCL [Concomitant]
     Route: 065
     Dates: start: 20070101, end: 20090101
  5. CIPROFLOXACIN [Concomitant]
     Dosage: 12-SEP-2007
     Route: 065
  6. IBUPROFEN [Concomitant]
     Dosage: 12-SEP-2007
     Route: 065
  7. ALPRAZOLAM [Concomitant]
     Dosage: 12-FEB-2008
     Route: 065
  8. CLARITHROMYCIN [Concomitant]
     Dosage: 21-MAR-2008
     Route: 065
  9. NITROGLYCERIN [Concomitant]
     Dosage: 26-MAR-2008
     Route: 065
  10. TYLENOL ES [Concomitant]
     Route: 065
  11. MULTI-VITAMIN [Concomitant]
     Route: 065

REACTIONS (8)
  - ABDOMINAL DISCOMFORT [None]
  - ABDOMINAL DISTENSION [None]
  - ABDOMINAL PAIN UPPER [None]
  - CHOLECYSTITIS CHRONIC [None]
  - CHOLELITHIASIS [None]
  - GALLBLADDER CHOLESTEROLOSIS [None]
  - NAUSEA [None]
  - VOMITING [None]
